FAERS Safety Report 7052253-1 (Version None)
Quarter: 2010Q4

REPORT INFORMATION
  Report Type: 
  Country: None (occurrence: None)
  Receive Date: 20101019
  Receipt Date: 20101014
  Transmission Date: 20110411
  Serious: Yes (Hospitalization, Other)
  Sender: FDA-Public Use
  Company Number: US-WYE-H18180610

PATIENT
  Age: 67 Year
  Sex: Male

DRUGS (2)
  1. TEMSIROLIMUS [Suspect]
     Indication: COLON CANCER
     Dosage: 25 MG, 20 MG WEEKLY
     Route: 042
     Dates: start: 20100713, end: 20100928
  2. DOXORUBICIN HCL [Suspect]
     Indication: COLON CANCER
     Dosage: 25 MG/M^2, 20 MG/M^2 Q 4 WEEKS
     Route: 042
     Dates: start: 20100713, end: 20100907

REACTIONS (8)
  - ASTHENIA [None]
  - CONFUSIONAL STATE [None]
  - FATIGUE [None]
  - HAEMOGLOBIN DECREASED [None]
  - LYMPHOPENIA [None]
  - MUSCLE TWITCHING [None]
  - PERIPHERAL MOTOR NEUROPATHY [None]
  - VIITH NERVE PARALYSIS [None]
